FAERS Safety Report 5908764-2 (Version None)
Quarter: 2008Q4

REPORT INFORMATION
  Report Type: 
  Country: None (occurrence: None)
  Receive Date: 20081006
  Receipt Date: 20080924
  Transmission Date: 20090506
  Serious: Yes (Other)
  Sender: FDA-Public Use
  Company Number: PHBS2008US05829

PATIENT
  Age: 69 Year
  Sex: Male

DRUGS (3)
  1. CYCLOSPORINE [Suspect]
     Indication: RENAL TRANSPLANT
     Dosage: UNK
     Dates: start: 20010101
  2. MYCOPHENOLATE MOFETIL [Suspect]
     Indication: RENAL TRANSPLANT
     Dosage: UNK
     Dates: start: 20010101
  3. AZATHIOPRINE [Concomitant]
     Indication: RENAL TRANSPLANT

REACTIONS (12)
  - ABSCESS INTESTINAL [None]
  - ANAEMIA [None]
  - APHTHOUS STOMATITIS [None]
  - CYTOMEGALOVIRUS COLITIS [None]
  - CYTOMEGALOVIRUS INFECTION [None]
  - DIARRHOEA [None]
  - GASTROINTESTINAL MUCOSAL DISORDER [None]
  - GASTROINTESTINAL TOXICITY [None]
  - HERPES ZOSTER [None]
  - LEUKOPENIA [None]
  - MOUTH ULCERATION [None]
  - WEIGHT DECREASED [None]
